FAERS Safety Report 6212111-9 (Version None)
Quarter: 2009Q2

REPORT INFORMATION
  Report Type: 
  Country: None (occurrence: None)
  Receive Date: 20090602
  Receipt Date: 20090521
  Transmission Date: 20091009
  Serious: Yes (Disabling, Other)
  Sender: FDA-Public Use
  Company Number: US-PFIZER INC-2009194656

PATIENT
  Sex: Female
  Weight: 85.261 kg

DRUGS (1)
  1. CHANTIX [Suspect]
     Indication: SMOKING CESSATION THERAPY
     Dosage: UNK
     Dates: start: 20090318, end: 20090301

REACTIONS (10)
  - ABDOMINAL PAIN UPPER [None]
  - ARTHRALGIA [None]
  - DISABILITY [None]
  - DYSPNOEA [None]
  - HEADACHE [None]
  - HEART RATE INCREASED [None]
  - MALAISE [None]
  - PHARYNGEAL OEDEMA [None]
  - SWELLING [None]
  - TINNITUS [None]
